FAERS Safety Report 23273054 (Version 1)
Quarter: 2023Q4

REPORT INFORMATION
  Report Type: Spontaneous
  Country: DZ (occurrence: DZ)
  Receive Date: 20231207
  Receipt Date: 20231207
  Transmission Date: 20240110
  Serious: Yes (Other)
  Sender: FDA-Public Use
  Company Number: DZ-HIKMA PHARMACEUTICALS-DZ-H14001-23-67655

PATIENT
  Age: 61 Year
  Sex: Female

DRUGS (1)
  1. AMOXICILLIN\CLAVULANIC ACID [Suspect]
     Active Substance: AMOXICILLIN\CLAVULANIC ACID
     Indication: Ear, nose and throat infection
     Dosage: 1 G/125MG
     Route: 065

REACTIONS (7)
  - Peripheral swelling [Unknown]
  - Ocular hyperaemia [Unknown]
  - Nasal congestion [Unknown]
  - Chest pain [Unknown]
  - Drug hypersensitivity [Unknown]
  - Erythema [Unknown]
  - Pruritus [Unknown]

NARRATIVE: CASE EVENT DATE: 20231128
